FAERS Safety Report 5254652-7 (Version None)
Quarter: 2007Q1

REPORT INFORMATION
  Report Type: 
  Country: None (occurrence: None)
  Receive Date: 20070302
  Receipt Date: 20070301
  Transmission Date: 20070707
  Serious: Yes (Other)
  Sender: FDA-Public Use
  Company Number: JP-ALLERGAN-0701822US

PATIENT
  Sex: Female

DRUGS (2)
  1. ALESION TABLET [Suspect]
     Indication: RHINITIS ALLERGIC
     Route: 048
     Dates: start: 20070215, end: 20070216
  2. ONON [Suspect]
     Indication: RHINITIS ALLERGIC
     Route: 048
     Dates: start: 20070214, end: 20070216

REACTIONS (1)
  - LOSS OF CONSCIOUSNESS [None]
